FAERS Safety Report 25701419 (Version 2)
Quarter: 2025Q3

REPORT INFORMATION
  Report Type: Report from Study
  Country: JP (occurrence: JP)
  Receive Date: 20250819
  Receipt Date: 20250828
  Transmission Date: 20251020
  Serious: No
  Sender: BridgeBio Pharma
  Company Number: JP-BRIDGEBIO-25JP001170

PATIENT

DRUGS (1)
  1. ACORAMIDIS [Suspect]
     Active Substance: ACORAMIDIS
     Indication: Cardiac amyloidosis
     Dosage: 800 MILLIGRAM, BID
     Route: 065
     Dates: start: 20250708

REACTIONS (5)
  - Physical deconditioning [Recovered/Resolved]
  - Dizziness [Recovering/Resolving]
  - Chest discomfort [Recovered/Resolved]
  - Oedema [Not Recovered/Not Resolved]
  - Gait disturbance [Not Recovered/Not Resolved]

NARRATIVE: CASE EVENT DATE: 20250701
